FAERS Safety Report 20430080 (Version 1)
Quarter: 2022Q1

REPORT INFORMATION
  Report Type: Report from Study
  Country: FR (occurrence: FR)
  Receive Date: 20220204
  Receipt Date: 20220204
  Transmission Date: 20220424
  Serious: Yes (Other)
  Sender: FDA-Public Use
  Company Number: FR-SERVIER-S20001643

PATIENT

DRUGS (7)
  1. ONCASPAR [Suspect]
     Active Substance: PEGASPARGASE
     Indication: Acute lymphocytic leukaemia
     Dosage: 1400 IU, QD ON D12
     Route: 042
     Dates: start: 20200115, end: 20200115
  2. TN UNSPECIFIED [Concomitant]
     Indication: Acute lymphocytic leukaemia
     Dosage: 32 MG, FROM D8 TO D28
     Route: 042
     Dates: start: 20200111, end: 20200131
  3. TN UNSPECIFIED [Concomitant]
     Indication: Acute lymphocytic leukaemia
     Dosage: 0.8 MG, D8, D15, D23
     Route: 042
     Dates: start: 20200112
  4. TN UNSPECIFIED [Concomitant]
     Indication: Acute lymphocytic leukaemia
     Dosage: 16.5 MG, ON D8, D15, D22, D29 DELAYED
     Route: 042
     Dates: start: 20200111, end: 20200210
  5. TN UNSPECIFIED [Concomitant]
     Indication: Acute lymphocytic leukaemia
     Dosage: 8 MG, ON D9, D13, D18, D24
     Route: 037
     Dates: start: 20200113, end: 20200127
  6. TN UNSPECIFIED [Concomitant]
     Indication: Acute lymphocytic leukaemia
     Dosage: 20 MG, ON D9, D13, D18, D24
     Route: 037
     Dates: start: 20200113, end: 20200127
  7. TN UNSPECIFIED [Concomitant]
     Indication: Acute lymphocytic leukaemia
     Dosage: 10 MG, D9, D13, D18, D24
     Route: 037
     Dates: start: 20200113, end: 20200127

REACTIONS (2)
  - Anal inflammation [Recovering/Resolving]
  - Gamma-glutamyltransferase increased [Not Recovered/Not Resolved]

NARRATIVE: CASE EVENT DATE: 20200202
